FAERS Safety Report 21285896 (Version 1)
Quarter: 2022Q3

REPORT INFORMATION
  Report Type: Spontaneous
  Country: FR (occurrence: FR)
  Receive Date: 20220902
  Receipt Date: 20220902
  Transmission Date: 20221027
  Serious: Yes (Other)
  Sender: FDA-Public Use
  Company Number: None

PATIENT
  Age: 66 Year
  Sex: Male
  Weight: 59 kg

DRUGS (8)
  1. ACETAMINOPHEN [Suspect]
     Active Substance: ACETAMINOPHEN
     Indication: Procedural pain
     Dosage: UNIT DOSE: 1 GM, THERAPY END DATE: NASK
     Route: 065
     Dates: start: 20210325
  2. TRAMADOL HYDROCHLORIDE [Suspect]
     Active Substance: TRAMADOL HYDROCHLORIDE
     Indication: Procedural pain
     Dosage: UNIT DOSE: 1 GM, THERAPY END DATE: NASK, TRAMADOL (CHLORHYDRATE DE)
     Dates: start: 20210325
  3. PROPOFOL LIPURO [Suspect]
     Active Substance: PROPOFOL
     Indication: General anaesthesia
     Dosage: FREQUENCY TIME : 1 TOTAL, DURATION: 1 DAY, UNIT DOSE: 250 MG
     Dates: start: 20210325, end: 20210325
  4. KETOPROFEN [Suspect]
     Active Substance: KETOPROFEN
     Indication: General anaesthesia
     Dosage: FREQUENCY TIME : 1 TOTAL, DURATION: 1 DAY, UNIT DOSE: 100 MG, KETOPROFENE MEDISOL 100 MG/4 ML
     Dates: start: 20210325, end: 20210325
  5. KETAMINE [Suspect]
     Active Substance: KETAMINE
     Indication: General anaesthesia
     Dosage: FORM STRENGTH : 50 MG/ML, FREQUENCY TIME : 1 TOTAL, DURATION: 1 DAY, UNIT DOSE: 50 MG
     Dates: start: 20210325, end: 20210325
  6. CISATRACURIUM [Suspect]
     Active Substance: CISATRACURIUM
     Indication: General anaesthesia
     Dosage: FREQUENCY TIME : 1 TOTAL, DURATION: 1 DAY, UNIT DOSE: 14 MG
     Dates: start: 20210325, end: 20210325
  7. KEYTRUDA [Suspect]
     Active Substance: PEMBROLIZUMAB
     Indication: Bronchial carcinoma
     Dosage: 6 CYCLES, FORM STRENGTH : 50 MG, FREQUENCY TIME : 1 CYCLICAL, DURATION: 124 DAYS, UNIT DOSE: 200 MG
     Dates: start: 20201105, end: 20210309
  8. CEFAZOLIN SODIUM [Suspect]
     Active Substance: CEFAZOLIN SODIUM
     Indication: Antibiotic prophylaxis
     Dosage: FORM STRENGTH : 1 G, (IM-IV), FREQUENCY TIME : 1 TOTAL, DURATION: 1 DAY, UNIT DOSE: 1 GM
     Route: 030
     Dates: start: 20210325, end: 20210325

REACTIONS (1)
  - Cholestatic liver injury [Recovered/Resolved]

NARRATIVE: CASE EVENT DATE: 20220330
